FAERS Safety Report 9829940 (Version 4)
Quarter: 2014Q2

REPORT INFORMATION
  Report Type: Report from Study
  Country: CA (occurrence: CA)
  Receive Date: 20140120
  Receipt Date: 20140617
  Transmission Date: 20141212
  Serious: Yes (Other)
  Sender: FDA-Public Use
  Company Number: CA-ROCHE-1137386

PATIENT
  Age: 73 Year
  Sex: Female
  Weight: 56.3 kg

DRUGS (9)
  1. RITUXAN [Suspect]
     Indication: RHEUMATOID ARTHRITIS
     Dosage: LAST DOSE OF RITUXIMAB ON 21/JAN/2014
     Route: 042
     Dates: start: 20101105
  2. VASOTEC [Concomitant]
  3. HYDROZOLE [Concomitant]
  4. VITAMIN C [Concomitant]
  5. VITAMIN B12 [Concomitant]
  6. ACETAMINOPHEN [Concomitant]
     Indication: PREMEDICATION
     Route: 048
     Dates: start: 20101105
  7. ACETAMINOPHEN [Concomitant]
     Route: 048
     Dates: start: 20120530
  8. DIPHENHYDRAMINE HCL [Concomitant]
     Indication: PREMEDICATION
     Route: 048
     Dates: start: 20101105
  9. METHYLPREDNISOLONE [Concomitant]
     Indication: PREMEDICATION
     Route: 042
     Dates: start: 20101105

REACTIONS (9)
  - Renal impairment [Not Recovered/Not Resolved]
  - Rectal haemorrhage [Unknown]
  - Productive cough [Recovering/Resolving]
  - Arthralgia [Not Recovered/Not Resolved]
  - Swelling [Not Recovered/Not Resolved]
  - Rash [Unknown]
  - Herpes zoster [Unknown]
  - Sciatica [Unknown]
  - Anorectal discomfort [Unknown]
